FAERS Safety Report 4901056-X (Version None)
Quarter: 2006Q1

REPORT INFORMATION
  Report Type: 
  Country: None (occurrence: None)
  Receive Date: 20060201
  Receipt Date: 20060118
  Transmission Date: 20060701
  Serious: Yes (Hospitalization)
  Sender: FDA-Public Use
  Company Number: DE200601002532

PATIENT
  Sex: Female

DRUGS (1)
  1. YENTREVE [Suspect]
     Dosage: ORAL
     Route: 048
     Dates: start: 20051101

REACTIONS (6)
  - ABDOMINAL PAIN UPPER [None]
  - DIARRHOEA [None]
  - FEELING ABNORMAL [None]
  - HEPATOTOXICITY [None]
  - NAUSEA [None]
  - TRANSAMINASES INCREASED [None]
